FAERS Safety Report 22371664 (Version 3)
Quarter: 2024Q4

REPORT INFORMATION
  Report Type: Spontaneous
  Country: US (occurrence: US)
  Receive Date: 20230526
  Receipt Date: 20241126
  Transmission Date: 20250115
  Serious: Yes (Disabling)
  Sender: INCYTE
  Company Number: US-INCYTE CORPORATION-2023IN005068

PATIENT

DRUGS (2)
  1. JAKAFI [Suspect]
     Active Substance: RUXOLITINIB
     Indication: Polycythaemia vera
     Dosage: 5 MILLIGRAM, BID
     Route: 048
     Dates: start: 20230422
  2. JAKAFI [Suspect]
     Active Substance: RUXOLITINIB
     Dosage: 5 MILLIGRAM, BID
     Route: 048
     Dates: start: 20230422

REACTIONS (3)
  - Balance disorder [Unknown]
  - Movement disorder [Unknown]
  - Constipation [Unknown]
